FAERS Safety Report 13659527 (Version 2)
Quarter: 2017Q3

REPORT INFORMATION
  Report Type: Report from Study
  Country: CA (occurrence: CA)
  Receive Date: 20170616
  Receipt Date: 20170727
  Transmission Date: 20171127
  Serious: Yes (Other)
  Sender: FDA-Public Use
  Company Number: CA-GLAXOSMITHKLINE-CA2017GSK086876

PATIENT
  Sex: Male

DRUGS (8)
  1. ADVAIR DISKUS [Suspect]
     Active Substance: FLUTICASONE PROPIONATE\SALMETEROL XINAFOATE
     Indication: PRODUCT USED FOR UNKNOWN INDICATION
     Dosage: 1 PUFF(S), BID
     Dates: end: 20150106
  2. SALBUTAMOL SULPHATE [Suspect]
     Active Substance: ALBUTEROL SULFATE
     Indication: PRODUCT USED FOR UNKNOWN INDICATION
     Dosage: UNK UNK, PRN
  3. NUCALA [Suspect]
     Active Substance: MEPOLIZUMAB
     Indication: ASTHMA
     Dosage: 100 MG, Z
     Route: 058
     Dates: start: 201706
  4. ZENHALE [Suspect]
     Active Substance: FORMOTEROL FUMARATE\MOMETASONE FUROATE
     Indication: PRODUCT USED FOR UNKNOWN INDICATION
     Dosage: UNK UNK, BID, 2 INHALATIONS MORNING AND EVENING
  5. CALCIUM D [Concomitant]
     Active Substance: CALCIUM\VITAMIN D
     Indication: PRODUCT USED FOR UNKNOWN INDICATION
     Dosage: UNK UNK, BID
  6. UNIPHYL [Suspect]
     Active Substance: THEOPHYLLINE ANHYDROUS
     Indication: PRODUCT USED FOR UNKNOWN INDICATION
     Dosage: 400 MG, QD
  7. SINGULAIR [Suspect]
     Active Substance: MONTELUKAST SODIUM
     Indication: PRODUCT USED FOR UNKNOWN INDICATION
     Dosage: UNK UNK, PRN
  8. ACTONEL [Concomitant]
     Active Substance: RISEDRONATE SODIUM
     Indication: PRODUCT USED FOR UNKNOWN INDICATION
     Dosage: 35 MG, Z

REACTIONS (27)
  - Otitis media chronic [Not Recovered/Not Resolved]
  - Asthma [Not Recovered/Not Resolved]
  - Rhinitis [Recovered/Resolved]
  - Sinusitis [Not Recovered/Not Resolved]
  - Gastrooesophageal reflux disease [Recovering/Resolving]
  - Cushingoid [Not Recovered/Not Resolved]
  - Treatment noncompliance [Not Recovered/Not Resolved]
  - Pulmonary function test abnormal [Unknown]
  - Bronchial hyperreactivity [Not Recovered/Not Resolved]
  - Dizziness [Unknown]
  - Drug dependence [Not Recovered/Not Resolved]
  - Dyspnoea [Not Recovered/Not Resolved]
  - Nasal polyps [Not Recovered/Not Resolved]
  - Nasal disorder [Not Recovered/Not Resolved]
  - Wheezing [Recovering/Resolving]
  - Otitis media [Unknown]
  - Cough [Recovering/Resolving]
  - Eosinophilia [Recovered/Resolved]
  - Hypocalcaemia [Unknown]
  - Laryngeal disorder [Not Recovered/Not Resolved]
  - Deafness [Unknown]
  - Bronchospasm [Recovering/Resolving]
  - Glucose tolerance impaired [Unknown]
  - Infection [Unknown]
  - Ear disorder [Not Recovered/Not Resolved]
  - Sputum discoloured [Recovering/Resolving]
  - Condition aggravated [Recovering/Resolving]
